FAERS Safety Report 5984037-7 (Version None)
Quarter: 2008Q4

REPORT INFORMATION
  Report Type: 
  Country: None (occurrence: None)
  Receive Date: 20081204
  Receipt Date: 20081204
  Transmission Date: 20090506
  Serious: Yes (Hospitalization)
  Sender: FDA-Public Use
  Company Number: None

PATIENT
  Sex: Male

DRUGS (1)
  1. NOVOSEVEN [Suspect]
     Indication: WOUND HAEMORRHAGE
     Dosage: 14000MCG X1 DOSE IV
     Route: 042
     Dates: start: 20071218

REACTIONS (1)
  - THROMBOPHLEBITIS SUPERFICIAL [None]
